FAERS Safety Report 6747481-6 (Version None)
Quarter: 2010Q2

REPORT INFORMATION
  Report Type: 
  Country: None (occurrence: None)
  Receive Date: 20100528
  Receipt Date: 20100525
  Transmission Date: 20101027
  Serious: Yes (Hospitalization)
  Sender: FDA-Public Use
  Company Number: US-MERCK-1005USA04278

PATIENT
  Sex: Male

DRUGS (3)
  1. JANUVIA [Suspect]
     Route: 048
  2. INSULIN [Concomitant]
     Route: 065
  3. LISINOPRIL [Concomitant]
     Route: 048

REACTIONS (4)
  - DRUG INTERACTION [None]
  - HEPATIC FUNCTION ABNORMAL [None]
  - NAUSEA [None]
  - PYREXIA [None]
